FAERS Safety Report 23579273 (Version 2)
Quarter: 2024Q3

REPORT INFORMATION
  Report Type: Spontaneous
  Country: JP (occurrence: JP)
  Receive Date: 20240229
  Receipt Date: 20240909
  Transmission Date: 20241016
  Serious: Yes (Other)
  Sender: BRISTOL MYERS SQUIBB
  Company Number: JP-BRISTOL-MYERS SQUIBB COMPANY-2024-025461

PATIENT
  Age: 5 Decade
  Sex: Female

DRUGS (11)
  1. VIDAZA [Suspect]
     Active Substance: AZACITIDINE
     Indication: Venoocclusive liver disease
     Route: 042
  2. VIDAZA [Suspect]
     Active Substance: AZACITIDINE
     Indication: Acute myeloid leukaemia recurrent
  3. DEFITELIO [Suspect]
     Active Substance: DEFIBROTIDE SODIUM
     Indication: Venoocclusive liver disease
     Route: 042
  4. DEFITELIO [Suspect]
     Active Substance: DEFIBROTIDE SODIUM
     Route: 042
  5. DEFITELIO [Suspect]
     Active Substance: DEFIBROTIDE SODIUM
     Route: 042
  6. VENETOCLAX [Concomitant]
     Active Substance: VENETOCLAX
     Indication: Acute myeloid leukaemia recurrent
  7. TACROLIMUS [Concomitant]
     Active Substance: TACROLIMUS
  8. METHYLPREDNISOLONE [Concomitant]
     Active Substance: METHYLPREDNISOLONE
  9. FRESH FROZEN PLASMA [Concomitant]
     Active Substance: HUMAN PLASMA
  10. FUROSEMIDE [Concomitant]
     Active Substance: FUROSEMIDE
     Indication: Product used for unknown indication
  11. BUSULFAN [Concomitant]
     Active Substance: BUSULFAN
     Indication: Product used for unknown indication

REACTIONS (9)
  - Cytopenia [Unknown]
  - Haemoglobin decreased [Unknown]
  - Diarrhoea [Unknown]
  - Oropharyngeal pain [Unknown]
  - Urine output decreased [Unknown]
  - Renal impairment [Unknown]
  - Hallucination, auditory [Unknown]
  - Insomnia [Unknown]
  - Venoocclusive liver disease [Unknown]
